FAERS Safety Report 4724316-4 (Version None)
Quarter: 2005Q3

REPORT INFORMATION
  Report Type: 
  Country: None (occurrence: None)
  Receive Date: 20050722
  Receipt Date: 20050722
  Transmission Date: 20060218
  Serious: Yes (Hospitalization)
  Sender: FDA-Public Use
  Company Number: None

PATIENT
  Sex: Female

DRUGS (10)
  1. CARBOPLATIN [Suspect]
     Indication: BRAIN CANCER METASTATIC
     Dosage: AUC5, Q21D, IV
     Route: 042
     Dates: start: 20050628
  2. VINORELBINE [Suspect]
     Indication: BRAIN CANCER METASTATIC
     Dosage: 25 MG/M2, D1,D8 Q21D, IV
     Route: 042
     Dates: start: 20050628
  3. VINORELBINE [Suspect]
     Indication: BRAIN CANCER METASTATIC
     Dosage: 25 MG/M2, D1,D8 Q21D, IV
     Route: 042
     Dates: start: 20050705
  4. HERCEPTIN [Suspect]
     Indication: BRAIN CANCER METASTATIC
     Dosage: 2 MG/KG, WEEKLY Q21D, IV
     Route: 042
     Dates: start: 20050628
  5. HERCEPTIN [Suspect]
     Indication: BRAIN CANCER METASTATIC
     Dosage: 2 MG/KG, WEEKLY Q21D, IV
     Route: 042
     Dates: start: 20050705
  6. HERCEPTIN [Suspect]
     Indication: BRAIN CANCER METASTATIC
     Dosage: 2 MG/KG, WEEKLY Q21D, IV
     Route: 042
     Dates: start: 20050712
  7. HERCEPTIN [Suspect]
     Indication: BRAIN CANCER METASTATIC
     Dosage: 2 MG/KG, WEEKLY Q21D, IV
     Route: 042
     Dates: start: 20050719
  8. DILANTIN [Concomitant]
  9. DECADRON [Concomitant]
  10. MORPHINE [Concomitant]

REACTIONS (2)
  - NAUSEA [None]
  - VOMITING [None]
